FAERS Safety Report 11089826 (Version 2)
Quarter: 2015Q2

REPORT INFORMATION
  Report Type: Spontaneous
  Country: US (occurrence: None)
  Receive Date: 20150501
  Receipt Date: 20150508
  Transmission Date: 20150821
  Serious: Yes (Hospitalization)
  Sender: FDA-Public Use
  Company Number: KAD201504-000940

PATIENT
  Age: 63 Year
  Sex: Male

DRUGS (8)
  1. LEVOTHYROXINE (LEVOTHYROXINE) [Concomitant]
     Active Substance: LEVOTHYROXINE
  2. TUDORZA (ACLIDINIUM BROMIDE) [Concomitant]
  3. CALCIUM ACETATE (CALCIUM ACETATE) [Concomitant]
  4. RIBAVIRIN (RIBAVIRIN) [Suspect]
     Active Substance: RIBAVIRIN
     Indication: HEPATITIS C
     Route: 048
     Dates: start: 20150324, end: 201504
  5. AMLODIPINE [Concomitant]
     Active Substance: AMLODIPINE BESYLATE
  6. LINZESS [Concomitant]
     Active Substance: LINACLOTIDE
  7. ASPIRIN (ACETYLSALICYLIC ACID) [Concomitant]
     Active Substance: ASPIRIN
  8. VIEKIRA PAK [Suspect]
     Active Substance: DASABUVIR\OMBITASVIR\PARITAPREVIR\RITONAVIR
     Indication: HEPATITIS C
     Route: 048
     Dates: start: 20150324, end: 201504

REACTIONS (6)
  - Insomnia [None]
  - Renal failure [None]
  - Somnolence [None]
  - Mobility decreased [None]
  - Medical device implantation [None]
  - Fatigue [None]

NARRATIVE: CASE EVENT DATE: 201504
